FAERS Safety Report 12970489 (Version 3)
Quarter: 2017Q1

REPORT INFORMATION
  Report Type: Report from Study
  Country: IE (occurrence: IE)
  Receive Date: 20161123
  Receipt Date: 20170201
  Transmission Date: 20170428
  Serious: Yes (Hospitalization)
  Sender: FDA-Public Use
  Company Number: PHFR2016IE009141

PATIENT
  Age: 60 Year
  Sex: Male

DRUGS (2)
  1. ZYKADIA [Suspect]
     Active Substance: CERITINIB
     Indication: LUNG CANCER METASTATIC
     Dosage: 750 MG, UNK
     Route: 048
     Dates: start: 20160911, end: 20161111
  2. ZYKADIA [Suspect]
     Active Substance: CERITINIB
     Dosage: UNK
     Route: 048
     Dates: start: 20161128

REACTIONS (2)
  - Pericardial effusion [Recovered/Resolved]
  - Malaise [Not Recovered/Not Resolved]

NARRATIVE: CASE EVENT DATE: 20161107
